FAERS Safety Report 16129314 (Version 2)
Quarter: 2019Q2

REPORT INFORMATION
  Report Type: Spontaneous
  Country: CH (occurrence: CH)
  Receive Date: 20190328
  Receipt Date: 20190405
  Transmission Date: 20190711
  Serious: Yes (Other)
  Sender: FDA-Public Use
  Company Number: PHHY2019CH068275

PATIENT
  Age: 52 Year
  Sex: Male

DRUGS (4)
  1. MYCOPHENOLATE MOFETIL. [Suspect]
     Active Substance: MYCOPHENOLATE MOFETIL
     Indication: MESENTERITIS
     Dosage: 3 G, QD
     Route: 065
     Dates: start: 2017, end: 201901
  2. TAMOXIFEN [Suspect]
     Active Substance: TAMOXIFEN
     Indication: MESENTERITIS
     Route: 065
  3. PREDNISONE. [Concomitant]
     Active Substance: PREDNISONE
     Indication: MESENTERITIS
     Dosage: 15 MG, QD
     Route: 065
  4. PREDNISONE. [Concomitant]
     Active Substance: PREDNISONE
     Dosage: 7.5 MG, QD
     Route: 065
     Dates: start: 201901

REACTIONS (1)
  - Drug ineffective for unapproved indication [Recovered/Resolved]
